FAERS Safety Report 16255323 (Version 1)
Quarter: 2019Q2

REPORT INFORMATION
  Report Type: Spontaneous
  Country: US (occurrence: US)
  Receive Date: 20190430
  Receipt Date: 20190430
  Transmission Date: 20190711
  Serious: Yes (Other)
  Sender: FDA-Public Use
  Company Number: US-AUROBINDO-AUR-APL-2019-022827

PATIENT

DRUGS (1)
  1. VORICONAZOLE. [Suspect]
     Active Substance: VORICONAZOLE
     Indication: ASPERGILLUS INFECTION
     Dosage: UNK
     Route: 065

REACTIONS (4)
  - Papule [Unknown]
  - Disease recurrence [Unknown]
  - Actinic keratosis [Unknown]
  - Squamous cell carcinoma of skin [Unknown]
